FAERS Safety Report 5168799-7 (Version None)
Quarter: 2006Q4

REPORT INFORMATION
  Report Type: 
  Country: None (occurrence: None)
  Receive Date: 20061206
  Receipt Date: 20061206
  Transmission Date: 20070319
  Serious: Yes (Other)
  Sender: FDA-Public Use
  Company Number: None

PATIENT
  Sex: Male
  Weight: 113.8529 kg

DRUGS (1)
  1. RISPERDAL CONSTA [Suspect]
     Indication: AGITATION
     Dosage: 25MG ONCE  IV
     Route: 042
     Dates: start: 20061203, end: 20061203

REACTIONS (2)
  - INCORRECT ROUTE OF DRUG ADMINISTRATION [None]
  - MEDICATION ERROR [None]
